FAERS Safety Report 26021845 (Version 3)
Quarter: 2025Q4

REPORT INFORMATION
  Report Type: Spontaneous
  Country: GB (occurrence: GB)
  Receive Date: 20251110
  Receipt Date: 20251221
  Transmission Date: 20260118
  Serious: Yes (Hospitalization, Other)
  Sender: ACCORD
  Company Number: GB-Accord-511672

PATIENT
  Age: 65 Year
  Sex: Male
  Weight: 80.4 kg

DRUGS (13)
  1. FLUOROURACIL [Suspect]
     Active Substance: FLUOROURACIL
     Indication: Rectal cancer stage IV
     Dosage: 2400MG/M2, Q2WEEKS (CYCLE DAY 1 AND 15), IV DRIP
     Route: 042
     Dates: start: 20250917, end: 20250918
  2. IRINOTECAN [Suspect]
     Active Substance: IRINOTECAN
     Indication: Rectal cancer stage IV
     Dosage: 180 MG/M2, Q2WEEKS (CYCLE DAY 1 AND 15), IV DRIP
     Route: 042
     Dates: start: 20250917, end: 20250917
  3. LEUCOVORIN [Suspect]
     Active Substance: LEUCOVORIN\LEUCOVORIN CALCIUM
     Indication: Rectal cancer stage IV
     Dosage: 350 MG/M2, Q2WEEKS (CYCLE DAY 1 AND 15), IV DRIP
     Route: 042
     Dates: start: 20250917, end: 20250917
  4. RAMIPRIL [Concomitant]
     Active Substance: RAMIPRIL
     Dates: start: 2023
  5. RIVAROXABAN [Concomitant]
     Active Substance: RIVAROXABAN
     Dates: start: 2023
  6. LOPERAMIDE [Concomitant]
     Active Substance: LOPERAMIDE
     Dates: start: 20251008
  7. BUTYLSCOPOLAMINE [Concomitant]
     Active Substance: BUTYLSCOPOLAMINE
     Dates: start: 20251007
  8. FLUOROURACIL [Suspect]
     Active Substance: FLUOROURACIL
     Indication: Rectal cancer stage IV
     Dosage: 5000 MG/M2, Q2WEEKS (CYCLE DAY 1 AND 15), IV DRIP
     Route: 042
     Dates: start: 20251015, end: 20251016
  9. IRINOTECAN [Suspect]
     Active Substance: IRINOTECAN
     Indication: Rectal cancer stage IV
     Dosage: 360 MG/M2, Q2WEEKS (CYCLE DAY 1 AND 15), IV DRIP
     Route: 042
     Dates: start: 20251001, end: 20251001
  10. IRINOTECAN [Suspect]
     Active Substance: IRINOTECAN
     Indication: Rectal cancer stage IV
     Dosage: 360 MG/M2, Q2WEEKS (CYCLE DAY 1 AND 15), IV DRIP
     Route: 042
     Dates: start: 20251015, end: 20251015
  11. FLUOROURACIL [Suspect]
     Active Substance: FLUOROURACIL
     Indication: Rectal cancer stage IV
     Dosage: 5000 MG/M2, Q2WEEKS (CYCLE DAY 1 AND 15), IV DRIP
     Route: 042
     Dates: start: 20251001, end: 20251002
  12. LEUCOVORIN [Suspect]
     Active Substance: LEUCOVORIN\LEUCOVORIN CALCIUM
     Indication: Rectal cancer stage IV
     Dosage: 350 MG/M2, Q2WEEKS (CYCLE DAY 1 AND 15), IV DRIP
     Route: 042
     Dates: start: 20251001, end: 20251001
  13. LEUCOVORIN [Suspect]
     Active Substance: LEUCOVORIN\LEUCOVORIN CALCIUM
     Indication: Rectal cancer stage IV
     Dosage: 350 MG/M2, Q2WEEKS (CYCLE DAY 1 AND 15), IV DRIP
     Route: 042
     Dates: start: 20251015, end: 20251015

REACTIONS (5)
  - Neutropenic sepsis [Recovered/Resolved]
  - Atelectasis [Unknown]
  - Rhinovirus infection [Unknown]
  - Enteritis [Unknown]
  - Ileus [Recovered/Resolved]

NARRATIVE: CASE EVENT DATE: 20251022
